APPROVED DRUG PRODUCT: CHLORZOXAZONE
Active Ingredient: CHLORZOXAZONE
Strength: 500MG
Dosage Form/Route: TABLET;ORAL
Application: A089970 | Product #001
Applicant: SUN PHARMACEUTICAL INDUSTRIES INC
Approved: Sep 27, 1990 | RLD: No | RS: No | Type: DISCN